FAERS Safety Report 10177255 (Version 3)
Quarter: 2014Q3

REPORT INFORMATION
  Report Type: Spontaneous
  Country: US (occurrence: US)
  Receive Date: 20140516
  Receipt Date: 20140917
  Transmission Date: 20150326
  Serious: Yes (Hospitalization)
  Sender: FDA-Public Use
  Company Number: US-GLAXOSMITHKLINE-A1072872A

PATIENT
  Age: 62 Year
  Sex: Female

DRUGS (7)
  1. VOTRIENT [Suspect]
     Active Substance: PAZOPANIB HYDROCHLORIDE
     Indication: RENAL CELL CARCINOMA
     Dosage: 800MG PER DAY
     Route: 048
     Dates: start: 201310
  2. LOSARTAN AND HYDROCHLOROTHIAZIDE [Concomitant]
     Active Substance: HYDROCHLOROTHIAZIDE\LOSARTAN POTASSIUM
  3. SERTRALINE [Concomitant]
     Active Substance: SERTRALINE HYDROCHLORIDE
  4. ZOFRAN [Concomitant]
     Active Substance: ONDANSETRON HYDROCHLORIDE
  5. RESTORIL [Concomitant]
     Active Substance: TEMAZEPAM
  6. SUTENT [Suspect]
     Active Substance: SUNITINIB MALATE
     Indication: PRODUCT USED FOR UNKNOWN INDICATION
     Route: 065
  7. OMEPRAZOLE. [Concomitant]
     Active Substance: OMEPRAZOLE

REACTIONS (30)
  - Vomiting [Unknown]
  - Heart rate decreased [Unknown]
  - Candida infection [Not Recovered/Not Resolved]
  - Stomatitis [Not Recovered/Not Resolved]
  - Weight decreased [Unknown]
  - Metastases to lung [Not Recovered/Not Resolved]
  - Fatigue [Not Recovered/Not Resolved]
  - Rash generalised [Unknown]
  - Bradycardia [Unknown]
  - Speech disorder [Unknown]
  - Dysgeusia [Not Recovered/Not Resolved]
  - Neoplasm [Not Recovered/Not Resolved]
  - Metastases to lymph nodes [Not Recovered/Not Resolved]
  - Cough [Not Recovered/Not Resolved]
  - Dehydration [Unknown]
  - Onychomycosis [Unknown]
  - Constipation [Not Recovered/Not Resolved]
  - Breast abscess [Unknown]
  - Gait disturbance [Not Recovered/Not Resolved]
  - Headache [Not Recovered/Not Resolved]
  - Drug dose omission [Unknown]
  - Tremor [Not Recovered/Not Resolved]
  - Nasal abscess [Unknown]
  - Joint swelling [Unknown]
  - Nausea [Unknown]
  - Decreased appetite [Unknown]
  - Glossodynia [Not Recovered/Not Resolved]
  - Tooth infection [Not Recovered/Not Resolved]
  - Diarrhoea [Unknown]
  - Fungal skin infection [Not Recovered/Not Resolved]

NARRATIVE: CASE EVENT DATE: 2013
